FAERS Safety Report 7558541-4 (Version None)
Quarter: 2011Q2

REPORT INFORMATION
  Report Type: 
  Country: None (occurrence: None)
  Receive Date: 20110621
  Receipt Date: 20110611
  Transmission Date: 20111010
  Serious: Yes (Death, Other)
  Sender: FDA-Public Use
  Company Number: BE-PAR PHARMACEUTICAL, INC-2011SCPR003070

PATIENT

DRUGS (1)
  1. TRAMADOL HCL [Suspect]
     Indication: PRODUCT USED FOR UNKNOWN INDICATION
     Dosage: UNK, UNKNOWN
     Route: 048

REACTIONS (5)
  - ACUTE PULMONARY OEDEMA [None]
  - DEATH [None]
  - RESPIRATORY DEPRESSION [None]
  - INTENTIONAL OVERDOSE [None]
  - COMPLETED SUICIDE [None]
